FAERS Safety Report 17240688 (Version 4)
Quarter: 2020Q1

REPORT INFORMATION
  Report Type: Spontaneous
  Country: US (occurrence: US)
  Receive Date: 20200107
  Receipt Date: 20200203
  Transmission Date: 20200409
  Serious: No
  Sender: FDA-Public Use
  Company Number: US-AMGEN INC.-USASP2020000757

PATIENT
  Age: 54 Year
  Sex: Female
  Weight: 89.34 kg

DRUGS (2)
  1. AIMOVIG [Suspect]
     Active Substance: ERENUMAB-AOOE
     Indication: MIGRAINE
     Dosage: 70 MILLIGRAM
     Route: 065
     Dates: start: 2019, end: 2019
  2. AIMOVIG [Suspect]
     Active Substance: ERENUMAB-AOOE
     Dosage: 140 MILLIGRAM, (Q 28 DAYS)
     Route: 058
     Dates: start: 20190502

REACTIONS (2)
  - Headache [Unknown]
  - Enlarged uvula [Recovered/Resolved]

NARRATIVE: CASE EVENT DATE: 2019
